FAERS Safety Report 9942560 (Version 1)
Quarter: 2014Q1

REPORT INFORMATION
  Report Type: Spontaneous
  Country: US (occurrence: US)
  Receive Date: 20140303
  Receipt Date: 20140303
  Transmission Date: 20141002
  Serious: No
  Sender: FDA-Public Use
  Company Number: US-ABBVIE-13P-163-1045029-00

PATIENT
  Age: 39 Year
  Sex: Male
  Weight: 88.98 kg

DRUGS (1)
  1. HUMIRA [Suspect]
     Indication: ARTHRITIS REACTIVE
     Dates: start: 20120411

REACTIONS (4)
  - Off label use [Not Recovered/Not Resolved]
  - Drug ineffective [Not Recovered/Not Resolved]
  - Device malfunction [Not Recovered/Not Resolved]
  - Incorrect dose administered [Not Recovered/Not Resolved]
